FAERS Safety Report 9018178 (Version 1)
Quarter: 2013Q1

REPORT INFORMATION
  Report Type: Spontaneous
  Country: US (occurrence: None)
  Receive Date: 20130111
  Receipt Date: 20130111
  Transmission Date: 20140127
  Serious: Yes (Disabling, Other)
  Sender: FDA-Public Use
  Company Number: None

PATIENT
  Age: 52 Year
  Sex: Female
  Weight: 95.26 kg

DRUGS (1)
  1. XELODA [Suspect]
     Indication: BREAST CANCER STAGE IV
     Dosage: 2000 MG TWICE DAILY PO
     Route: 048
     Dates: start: 20121114, end: 20130101

REACTIONS (6)
  - Skin discolouration [None]
  - Pain in extremity [None]
  - Gait disturbance [None]
  - Foot deformity [None]
  - Hand deformity [None]
  - Pain in extremity [None]
